FAERS Safety Report 23760227 (Version 1)
Quarter: 2024Q2

REPORT INFORMATION
  Report Type: Spontaneous
  Country: TR (occurrence: TR)
  Receive Date: 20240419
  Receipt Date: 20240419
  Transmission Date: 20240716
  Serious: Yes (Other)
  Sender: FDA-Public Use
  Company Number: TR-SUN PHARMACEUTICAL INDUSTRIES LTD-2024R1-441805

PATIENT
  Age: 56 Year
  Sex: Male

DRUGS (2)
  1. CARBOPLATIN [Suspect]
     Active Substance: CARBOPLATIN
     Indication: Pilomatrix carcinoma
     Dosage: AUC 5 IN 21 DAY CYCLES (THREE CYCLES)
     Route: 065
  2. PACLITAXEL [Suspect]
     Active Substance: PACLITAXEL
     Indication: Pilomatrix carcinoma
     Dosage: 175 MILLIGRAM/SQ. METER IN 21 DAY CYCLES (THREE CYCLES)
     Route: 065

REACTIONS (1)
  - Disease progression [Unknown]
